FAERS Safety Report 16577384 (Version 1)
Quarter: 2019Q3

REPORT INFORMATION
  Report Type: Spontaneous
  Country: US (occurrence: US)
  Receive Date: 20190716
  Receipt Date: 20190716
  Transmission Date: 20191004
  Serious: Yes (Hospitalization, Other)
  Sender: FDA-Public Use
  Company Number: US-PFIZER INC-2019294173

PATIENT
  Age: 71 Year
  Sex: Female

DRUGS (9)
  1. VINCRISTINE SULFATE. [Suspect]
     Active Substance: VINCRISTINE SULFATE
     Indication: LYMPHOMA
     Dosage: 1 MG, EVERY 3 WEEKS
     Route: 042
     Dates: start: 20060427, end: 20061113
  2. ACYCLOVIR [ACICLOVIR] [Concomitant]
     Active Substance: ACYCLOVIR
     Indication: PROPHYLAXIS
     Dosage: 800 MG, 3X/DAY
     Route: 048
     Dates: start: 20061018
  3. TOPRAL [SULTOPRIDE] [Concomitant]
     Dosage: 25 MG, DAILY
     Dates: start: 20060511
  4. NIPENT [Suspect]
     Active Substance: PENTOSTATIN
     Indication: LYMPHOMA
     Dosage: 4 MG, EVERY 3 WEEKS
     Route: 042
     Dates: start: 20060918, end: 20061120
  5. LIPITOR [Concomitant]
     Active Substance: ATORVASTATIN CALCIUM
     Indication: BLOOD CHOLESTEROL
     Dosage: 10 MG, DAILY
     Route: 048
  6. FOSAMAX [Concomitant]
     Active Substance: ALENDRONATE SODIUM
     Indication: BONE LOSS
     Dosage: UNK UNK, WEEKLY
     Route: 048
  7. BACTRIM [Concomitant]
     Active Substance: SULFAMETHOXAZOLE\TRIMETHOPRIM
     Indication: PROPHYLAXIS
     Dosage: UNK (TWO TIMES A DAY)
     Route: 048
     Dates: start: 20061018
  8. CYCLOPHOSPHAMIDE. [Suspect]
     Active Substance: CYCLOPHOSPHAMIDE
     Indication: LYMPHOMA
     Dosage: 7.5 MG, EVERY 3 WEEKS
     Dates: start: 20060918
  9. COUMADIN [Concomitant]
     Active Substance: WARFARIN SODIUM
     Indication: ATRIAL FIBRILLATION
     Dosage: 4 MG, DAILY
     Route: 048

REACTIONS (8)
  - Nausea [Unknown]
  - Mental disorder [Not Recovered/Not Resolved]
  - Pulmonary oedema [Unknown]
  - Balance disorder [Unknown]
  - Atrial fibrillation [Not Recovered/Not Resolved]
  - Pleural effusion [Not Recovered/Not Resolved]
  - Dyspnoea [Not Recovered/Not Resolved]
  - Neurological symptom [Unknown]

NARRATIVE: CASE EVENT DATE: 200611
